FAERS Safety Report 12576779 (Version 2)
Quarter: 2016Q3

REPORT INFORMATION
  Report Type: Spontaneous
  Country: IT (occurrence: IT)
  Receive Date: 20160720
  Receipt Date: 20160805
  Transmission Date: 20161109
  Serious: Yes (Death, Hospitalization, Other)
  Sender: FDA-Public Use
  Company Number: IT-ABBVIE-16P-083-1675848-00

PATIENT
  Sex: Male

DRUGS (2)
  1. VIEKIRAX [Suspect]
     Active Substance: OMBITASVIR\PARITAPREVIR\RITONAVIR
     Indication: CHRONIC HEPATITIS C
     Dosage: 2 UNIT DAILY
     Route: 048
     Dates: start: 20160623, end: 20160714
  2. EXVIERA [Suspect]
     Active Substance: DASABUVIR
     Indication: CHRONIC HEPATITIS C
     Dosage: 2 UNIT DAILY
     Route: 048
     Dates: start: 20160623, end: 20160714

REACTIONS (3)
  - Ascites [Fatal]
  - Cryoglobulinaemia [Fatal]
  - Encephalopathy [Unknown]

NARRATIVE: CASE EVENT DATE: 20160711
